FAERS Safety Report 23358741 (Version 3)
Quarter: 2024Q1

REPORT INFORMATION
  Report Type: Spontaneous
  Country: CH (occurrence: CH)
  Receive Date: 20240102
  Receipt Date: 20240104
  Transmission Date: 20240410
  Serious: Yes (Life-Threatening, Hospitalization)
  Sender: FDA-Public Use
  Company Number: CH-TAKEDA-2023TUS123226

PATIENT
  Age: 74 Year
  Sex: Male
  Weight: 100 kg

DRUGS (14)
  1. PANTOZOL [Interacting]
     Active Substance: PANTOPRAZOLE SODIUM
     Indication: Arterial disorder
     Dosage: 40 MILLIGRAM, QD
     Route: 048
  2. METHOTREXATE SODIUM [Interacting]
     Active Substance: METHOTREXATE SODIUM
     Indication: Polymyalgia rheumatica
     Dosage: 15 MILLIGRAM, 1/WEEK
     Route: 048
     Dates: start: 202304, end: 20231115
  3. AMOXICILLIN SODIUM [Interacting]
     Active Substance: AMOXICILLIN SODIUM
     Indication: Diabetic foot
     Dosage: 1 GRAM, TID
     Route: 048
     Dates: start: 20231030, end: 20231116
  4. ASPIRIN [Interacting]
     Active Substance: ASPIRIN
     Indication: Coronary artery disease
     Dosage: 100 MILLIGRAM, QD
     Route: 048
     Dates: start: 20231030, end: 20231116
  5. FOLIC ACID [Concomitant]
     Active Substance: FOLIC ACID
     Dosage: 5 MILLIGRAM, 1/WEEK
     Route: 048
  6. PALEXIA [Concomitant]
     Active Substance: TAPENTADOL HYDROCHLORIDE
     Indication: Pain
     Dosage: 200 MILLIGRAM, TID
     Route: 048
  7. ROSUVASTATIN [Concomitant]
     Active Substance: ROSUVASTATIN
     Indication: Hypercholesterolaemia
     Dosage: 20 MILLIGRAM, 1/WEEK
     Route: 048
  8. TORSEMIDE [Concomitant]
     Active Substance: TORSEMIDE
     Dosage: UNK
     Route: 048
     Dates: end: 202312
  9. ALLOPURINOL [Concomitant]
     Active Substance: ALLOPURINOL
     Indication: Gout
     Dosage: 300 MILLIGRAM, 1/WEEK
     Route: 048
  10. OZEMPIC [Concomitant]
     Active Substance: SEMAGLUTIDE
     Indication: Diabetes mellitus
     Dosage: 1 MILLIGRAM, 1/WEEK
     Route: 058
     Dates: start: 20231101
  11. AMPHOTERICIN B [Concomitant]
     Active Substance: AMPHOTERICIN B
     Dosage: UNK
     Route: 065
     Dates: start: 20231118
  12. VABYSMO [Concomitant]
     Active Substance: FARICIMAB\FARICIMAB-SVOA
     Indication: Macular degeneration
     Dosage: UNK
     Route: 058
     Dates: end: 20231017
  13. PREDNISOLONE [Concomitant]
     Active Substance: PREDNISOLONE
     Dosage: 50 MILLIGRAM
     Dates: start: 20231120, end: 20231120
  14. DESLORATADINE [Concomitant]
     Active Substance: DESLORATADINE
     Dosage: UNK
     Route: 065

REACTIONS (8)
  - Drug interaction [Recovering/Resolving]
  - Stomatitis [Recovered/Resolved]
  - Agranulocytosis [Recovered/Resolved]
  - Liver disorder [Recovering/Resolving]
  - Conjunctivitis [Recovered/Resolved]
  - Thrombocytopenia [Recovered/Resolved]
  - Toxicity to various agents [Recovering/Resolving]
  - Herpes simplex [Recovered/Resolved]

NARRATIVE: CASE EVENT DATE: 20231113
